FAERS Safety Report 5053204-1 (Version None)
Quarter: 2006Q3

REPORT INFORMATION
  Report Type: 
  Country: None (occurrence: None)
  Receive Date: 20060712
  Receipt Date: 20060629
  Transmission Date: 20061208
  Serious: Yes (Hospitalization, Other)
  Sender: FDA-Public Use
  Company Number: 2006080733

PATIENT
  Sex: Female
  Weight: 69.8539 kg

DRUGS (4)
  1. NEURONTIN [Suspect]
     Indication: NEUROPATHY PERIPHERAL
     Dosage: 1600 MG (800 MG, 2 IN 1D)
  2. CAMPRAL [Concomitant]
  3. PROMETRIUM [Concomitant]
  4. NITROFURAN (NITROFURANTOIN) [Concomitant]

REACTIONS (6)
  - ABDOMINAL PAIN [None]
  - BLADDER DISORDER [None]
  - DRUG EFFECT DECREASED [None]
  - HYSTERECTOMY [None]
  - OLIGURIA [None]
  - POOR PERIPHERAL CIRCULATION [None]
